FAERS Safety Report 6392469-0 (Version None)
Quarter: 2009Q4

REPORT INFORMATION
  Report Type: 
  Country: None (occurrence: None)
  Receive Date: 20091005
  Receipt Date: 20090918
  Transmission Date: 20100525
  Serious: Yes (Death)
  Sender: FDA-Public Use
  Company Number: 2009002854

PATIENT
  Age: 51 Year
  Sex: Female
  Weight: 60 kg

DRUGS (3)
  1. ERLOTINIB HYDROCHLORIDE [Suspect]
     Dosage: 150 MG, QD, ORAL
     Route: 048
     Dates: start: 20080922
  2. SUNITINIB MALATE/PLACEBO [Suspect]
     Indication: NON-SMALL CELL LUNG CANCER
     Dosage: 37.5 MG, QD, ORAL
     Route: 048
     Dates: start: 20080922
  3. CLODRONATE DISODIUM (CLODRONATE DISODIUM) [Concomitant]

REACTIONS (2)
  - MALIGNANT NEOPLASM PROGRESSION [None]
  - NON-SMALL CELL LUNG CANCER [None]
